FAERS Safety Report 8168781-1 (Version None)
Quarter: 2012Q1

REPORT INFORMATION
  Report Type: 
  Country: None (occurrence: None)
  Receive Date: 20120227
  Receipt Date: 20120215
  Transmission Date: 20120608
  Serious: Yes (Hospitalization, Other)
  Sender: FDA-Public Use
  Company Number: US-ELI_LILLY_AND_COMPANY-US201202005167

PATIENT
  Sex: Female

DRUGS (7)
  1. STOOL SOFTENER [Concomitant]
  2. LIPITOR [Concomitant]
     Dosage: 10 MG, UNK
  3. FORTEO [Suspect]
     Indication: OSTEOPOROSIS
     Dosage: 20 UG, QD
     Dates: start: 20110101
  4. ANTIBIOTICS [Concomitant]
  5. LORAZEPAM [Concomitant]
     Dosage: 1 MG, UNK
  6. CITALOPRAM HYDROBROMIDE [Concomitant]
     Dosage: 40 MG, UNK
  7. ONDANT [Concomitant]
     Dosage: 40 MG, UNK

REACTIONS (3)
  - MALAISE [None]
  - PAIN [None]
  - INTESTINAL OBSTRUCTION [None]
